FAERS Safety Report 14275666 (Version 1)
Quarter: 2017Q4

REPORT INFORMATION
  Report Type: Spontaneous
  Country: US (occurrence: US)
  Receive Date: 20171211
  Receipt Date: 20171211
  Transmission Date: 20180321
  Serious: Yes (Other)
  Sender: FDA-Public Use
  Company Number: US-OTSUKA-2017_013609

PATIENT
  Sex: Female

DRUGS (1)
  1. ABILIFY [Suspect]
     Active Substance: ARIPIPRAZOLE
     Indication: MAJOR DEPRESSION
     Dosage: UNK
     Route: 065
     Dates: start: 20080905, end: 20160117

REACTIONS (8)
  - Suicidal ideation [Not Recovered/Not Resolved]
  - Compulsive sexual behaviour [Not Recovered/Not Resolved]
  - Binge eating [Not Recovered/Not Resolved]
  - Gambling [Not Recovered/Not Resolved]
  - Overdose [Unknown]
  - Compulsive shopping [Not Recovered/Not Resolved]
  - Suicide attempt [Not Recovered/Not Resolved]
  - Obsessive-compulsive disorder [Unknown]
